FAERS Safety Report 5510446-6 (Version None)
Quarter: 2007Q4

REPORT INFORMATION
  Report Type: 
  Country: None (occurrence: None)
  Receive Date: 20071108
  Receipt Date: 20071106
  Transmission Date: 20080405
  Serious: No
  Sender: FDA-Public Use
  Company Number: AR-ELI_LILLY_AND_COMPANY-AR200710006610

PATIENT
  Age: 78 Year
  Sex: Female

DRUGS (8)
  1. CYMBALTA [Suspect]
     Indication: DEPRESSION
     Dosage: 60 MG, DAILY (1/D)
     Route: 048
     Dates: start: 20070301
  2. CYMBALTA [Suspect]
     Dosage: 30 MG, DAILY (1/D)
     Route: 048
     Dates: start: 20070101, end: 20071029
  3. DULOXETINE HYDROCHLORIDE [Concomitant]
     Indication: DEPRESSION
     Dosage: 60 MG, DAILY (1/D)
     Route: 048
     Dates: start: 20070101
  4. GABAPENTIN [Concomitant]
     Indication: PAIN
     Dosage: UNK, UNKNOWN
     Route: 048
  5. OMEPRAZOLE [Concomitant]
     Dosage: UNK, UNKNOWN
     Route: 065
  6. ECOTRIN [Concomitant]
     Dosage: UNK, UNKNOWN
     Route: 065
  7. LORAZEPAM [Concomitant]
     Dosage: UNK, UNKNOWN
     Route: 065
  8. MELATONIN [Concomitant]
     Dosage: UNK, UNKNOWN
     Route: 065

REACTIONS (1)
  - BLOOD BILIRUBIN UNCONJUGATED INCREASED [None]
